FAERS Safety Report 9548334 (Version 1)
Quarter: 2013Q2

REPORT INFORMATION
  Report Type: Spontaneous
  Country: US (occurrence: None)
  Receive Date: 20130624
  Receipt Date: 20130624
  Transmission Date: 20140414
  Serious: Yes (Other)
  Sender: FDA-Public Use
  Company Number: SYM-2013-05053

PATIENT
  Age: 76 Year
  Sex: Male

DRUGS (1)
  1. TARGRETIN [Suspect]
     Indication: T-CELL LYMPHOMA
     Dosage: 1 IN 1 D
     Route: 048

REACTIONS (1)
  - Hypothyroidism [None]
